FAERS Safety Report 6285574-0 (Version None)
Quarter: 2009Q3

REPORT INFORMATION
  Report Type: 
  Country: None (occurrence: None)
  Receive Date: 20090727
  Receipt Date: 20090218
  Transmission Date: 20100115
  Serious: No
  Sender: FDA-Public Use
  Company Number: US-TYCO HEALTHCARE/MALLINCKRODT-T200900436

PATIENT
  Sex: Female

DRUGS (2)
  1. METHADONE HCL [Suspect]
  2. CELEBREX [Suspect]

REACTIONS (1)
  - MALAISE [None]
